FAERS Safety Report 11680002 (Version 3)
Quarter: 2016Q2

REPORT INFORMATION
  Report Type: Report from Study
  Country: US (occurrence: US)
  Receive Date: 20151029
  Receipt Date: 20160422
  Transmission Date: 20160815
  Serious: Yes (Other)
  Sender: FDA-Public Use
  Company Number: US-AMGEN-USASL2015111044

PATIENT
  Age: 54 Year
  Sex: Male
  Weight: 58 kg

DRUGS (1)
  1. ENBREL [Suspect]
     Active Substance: ETANERCEPT
     Indication: ANKYLOSING SPONDYLITIS
     Dosage: 50 MG, QWK
     Route: 065
     Dates: start: 199901

REACTIONS (21)
  - Renal failure [Unknown]
  - Peripheral swelling [Unknown]
  - Joint swelling [Unknown]
  - Cardiac disorder [Unknown]
  - Cataract operation [Unknown]
  - Nephrolithiasis [Unknown]
  - Wrist surgery [Unknown]
  - Arthritis [Unknown]
  - Dysphagia [Unknown]
  - Swelling [Unknown]
  - Joint arthroplasty [Unknown]
  - Renal cancer [Unknown]
  - Thyroidectomy [Unknown]
  - Visual acuity reduced [Unknown]
  - Red blood cell sedimentation rate increased [Unknown]
  - Feeling abnormal [Unknown]
  - Unevaluable event [Unknown]
  - Injection site induration [Unknown]
  - Parathyroidectomy [Unknown]
  - Mobility decreased [Unknown]
  - Jaw disorder [Unknown]

NARRATIVE: CASE EVENT DATE: 2001
